FAERS Safety Report 17905312 (Version 7)
Quarter: 2020Q3

REPORT INFORMATION
  Report Type: Report from Study
  Country: ES (occurrence: ES)
  Receive Date: 20200616
  Receipt Date: 20200816
  Transmission Date: 20201103
  Serious: Yes (Hospitalization)
  Sender: FDA-Public Use
  Company Number: NVSC2020ES164209

PATIENT
  Age: 43 Year
  Sex: Female
  Weight: 55 kg

DRUGS (10)
  1. LAG525 [Suspect]
     Active Substance: IERAMILIMAB
     Indication: BREAST CANCER
     Dosage: 400 MG, Q3W
     Route: 042
     Dates: start: 20190808, end: 20200601
  2. BIO K 20 POTASSIUM [Concomitant]
     Indication: HYPOKALAEMIA
     Dosage: UNK
     Route: 065
     Dates: start: 20200601
  3. FILGRASTIM [Concomitant]
     Active Substance: FILGRASTIM
     Indication: LEUKOPENIA
     Dosage: UNK
     Route: 065
     Dates: start: 20191120
  4. CARBOPLATIN. [Suspect]
     Active Substance: CARBOPLATIN
     Indication: BREAST CANCER
     Dosage: 830 MG, Q3W
     Route: 042
     Dates: start: 20190808
  5. HIDROFEROL [Concomitant]
     Active Substance: CALCIFEDIOL
     Indication: MENOPAUSE
     Dosage: UNK
     Route: 065
     Dates: start: 20190101
  6. EUTIROX [Concomitant]
     Active Substance: LEVOTHYROXINE SODIUM
     Indication: HYPOTHYROIDISM
     Dosage: UNK
     Route: 065
     Dates: start: 20190601
  7. TRAMADOL. [Concomitant]
     Active Substance: TRAMADOL
     Indication: PAIN PROPHYLAXIS
     Dosage: UNK
     Route: 065
     Dates: start: 20190808
  8. MACROGOL [Concomitant]
     Active Substance: POLYETHYLENE GLYCOLS
     Indication: CONSTIPATION
     Dosage: UNK
     Route: 065
     Dates: start: 20190822
  9. SPARTALIZUMAB [Suspect]
     Active Substance: SPARTALIZUMAB
     Indication: BREAST CANCER
     Dosage: 300 MG, Q3W
     Route: 042
     Dates: start: 20190808, end: 20200601
  10. METOCLOPRAMIDA [Concomitant]
     Active Substance: METOCLOPRAMIDE HYDROCHLORIDE
     Indication: NAUSEA
     Dosage: UNK
     Route: 065
     Dates: start: 20190814

REACTIONS (1)
  - Erosive duodenitis [Recovered/Resolved]

NARRATIVE: CASE EVENT DATE: 20200610
